FAERS Safety Report 9975857 (Version 1)
Quarter: 2014Q1

REPORT INFORMATION
  Report Type: Spontaneous
  Country: US (occurrence: US)
  Receive Date: 20140306
  Receipt Date: 20140306
  Transmission Date: 20141002
  Serious: Yes (Death)
  Sender: FDA-Public Use
  Company Number: CHPA2014US003442

PATIENT
  Age: 92 Year
  Sex: Female

DRUGS (1)
  1. PERDIEM OVERNIGHT RELIEF PILLS [Suspect]
     Dosage: UNK
     Route: 048

REACTIONS (2)
  - Death [Fatal]
  - Incorrect drug administration duration [Unknown]
